FAERS Safety Report 6698490-7 (Version None)
Quarter: 2010Q2

REPORT INFORMATION
  Report Type: 
  Country: None (occurrence: None)
  Receive Date: 20100427
  Receipt Date: 20100420
  Transmission Date: 20101027
  Serious: Yes (Other)
  Sender: FDA-Public Use
  Company Number: B0648390A

PATIENT
  Age: 25 Year
  Sex: Female

DRUGS (2)
  1. NICOTINE [Suspect]
     Dates: start: 20100405, end: 20100406
  2. ALLI [Concomitant]
     Dosage: 120MG PER DAY
     Route: 048
     Dates: start: 20100201

REACTIONS (5)
  - DYSPNOEA [None]
  - MUSCULOSKELETAL DISCOMFORT [None]
  - NAUSEA [None]
  - PAIN [None]
  - PALPITATIONS [None]
